FAERS Safety Report 7210999-6 (Version None)
Quarter: 2011Q1

REPORT INFORMATION
  Report Type: 
  Country: None (occurrence: None)
  Receive Date: 20110105
  Receipt Date: 20101227
  Transmission Date: 20110831
  Serious: Yes (Other)
  Sender: FDA-Public Use
  Company Number: B0691263A

PATIENT
  Age: 56 Year
  Sex: Male

DRUGS (4)
  1. MILNACIPRAN HYDROCHLORIDE [Concomitant]
     Dosage: 150MG PER DAY
     Route: 048
  2. PAXIL [Suspect]
     Indication: DEPRESSION
     Dosage: 40MG PER DAY
     Route: 048
  3. ARIPIPRAZOLE [Concomitant]
     Dosage: 3MG PER DAY
     Route: 048
  4. AMOXAPINE [Concomitant]
     Dosage: 150MG PER DAY
     Route: 048

REACTIONS (5)
  - SALIVARY HYPERSECRETION [None]
  - APATHY [None]
  - PARKINSONISM [None]
  - GAIT DISTURBANCE [None]
  - MASKED FACIES [None]
